FAERS Safety Report 5989556-5 (Version None)
Quarter: 2008Q4

REPORT INFORMATION
  Report Type: 
  Country: None (occurrence: None)
  Receive Date: 20081208
  Receipt Date: 20081124
  Transmission Date: 20090506
  Serious: Yes (Other)
  Sender: FDA-Public Use
  Company Number: 2008S1018920

PATIENT
  Age: 72 Year
  Sex: Female
  Weight: 83.9154 kg

DRUGS (5)
  1. AMIODARONE HYDROCHLORIDE [Suspect]
     Indication: CARDIAC DISORDER
     Dosage: 200 MG; DAILY; ORAL
     Route: 048
     Dates: start: 20050101, end: 20080501
  2. LIPITOR [Concomitant]
  3. COUMADIN [Concomitant]
  4. TRANXENE [Concomitant]
  5. ASPIRIN [Concomitant]

REACTIONS (14)
  - BLISTER [None]
  - DYSKINESIA [None]
  - FATIGUE [None]
  - HAEMATEMESIS [None]
  - HYPERHIDROSIS [None]
  - INSOMNIA [None]
  - NERVOUSNESS [None]
  - PAIN [None]
  - PULMONARY FIBROSIS [None]
  - SCAR [None]
  - THYROID DISORDER [None]
  - TREMOR [None]
  - VISION BLURRED [None]
  - VISUAL IMPAIRMENT [None]
